FAERS Safety Report 5536470-5 (Version None)
Quarter: 2007Q4

REPORT INFORMATION
  Report Type: 
  Country: None (occurrence: None)
  Receive Date: 20071206
  Receipt Date: 20071127
  Transmission Date: 20080405
  Serious: Yes (Hospitalization)
  Sender: FDA-Public Use
  Company Number: US-MERCK-0711USA05080

PATIENT
  Age: 57 Year
  Sex: Male
  Weight: 94 kg

DRUGS (17)
  1. DECADRON [Suspect]
     Indication: MULTIPLE MYELOMA
     Route: 048
     Dates: start: 20060908, end: 20061031
  2. REVLIMID [Suspect]
     Indication: MULTIPLE MYELOMA
     Route: 048
     Dates: start: 20060908, end: 20060901
  3. REVLIMID [Suspect]
     Route: 048
     Dates: start: 20061009, end: 20061001
  4. PREDNISONE [Concomitant]
     Indication: MULTIPLE MYELOMA
     Route: 048
  5. COMBIVENT [Concomitant]
     Indication: DYSPNOEA
     Dates: end: 20061113
  6. SPIRIVA [Concomitant]
     Route: 065
     Dates: end: 20071113
  7. ACTIQ [Concomitant]
     Indication: PAIN
     Route: 048
  8. OXYCONTIN [Concomitant]
     Route: 048
  9. OXYCONTIN [Concomitant]
     Route: 048
  10. DILAUDID [Concomitant]
     Route: 048
  11. DILAUDID [Concomitant]
     Route: 048
  12. ALBUTEROL [Concomitant]
     Indication: DYSPNOEA
  13. COUMADIN [Concomitant]
     Route: 048
  14. AREDIA [Concomitant]
     Route: 042
  15. ANDRODERM [Concomitant]
     Route: 061
  16. BACLOFEN [Concomitant]
     Indication: HICCUPS
     Route: 048
  17. ADVAIR DISKUS 100/50 [Concomitant]
     Route: 065
     Dates: start: 20061113

REACTIONS (6)
  - CHRONIC OBSTRUCTIVE PULMONARY DISEASE [None]
  - ENCEPHALOPATHY [None]
  - FATIGUE [None]
  - HEPATITIS C [None]
  - PANCYTOPENIA [None]
  - PNEUMONIA [None]
